FAERS Safety Report 26065988 (Version 4)
Quarter: 2025Q4

REPORT INFORMATION
  Report Type: Spontaneous
  Country: JP (occurrence: JP)
  Receive Date: 20251119
  Receipt Date: 20251212
  Transmission Date: 20260117
  Serious: Yes (Life-Threatening, Hospitalization)
  Sender: MALLINCKRODT
  Company Number: JP-MALLINCKRODT-MNK202507223

PATIENT
  Age: 70 Year
  Sex: Male

DRUGS (2)
  1. NITRIC OXIDE [Suspect]
     Active Substance: NITRIC OXIDE
     Indication: Pulmonary hypertension
     Dosage: UNKNOWN
     Route: 055
  2. NITRIC OXIDE [Suspect]
     Active Substance: NITRIC OXIDE
     Dosage: UNKNOWN, GRADUAL REDUCTION
     Route: 055

REACTIONS (4)
  - Ventricular fibrillation [Unknown]
  - Pulmonary congestion [Recovering/Resolving]
  - Condition aggravated [Recovering/Resolving]
  - PO2 decreased [Unknown]
